FAERS Safety Report 5480826-6 (Version None)
Quarter: 2007Q4

REPORT INFORMATION
  Report Type: 
  Country: None (occurrence: None)
  Receive Date: 20071009
  Receipt Date: 20070925
  Transmission Date: 20080405
  Serious: No
  Sender: FDA-Public Use
  Company Number: US-BOEHRINGER INGELHEIM PHARMACEUTICALS, INC.-2007-BP-16272BP

PATIENT
  Sex: Female

DRUGS (3)
  1. ATROVENT HFA [Suspect]
     Indication: VOCAL CORD DISORDER
     Route: 055
     Dates: start: 20070625, end: 20070626
  2. INDERAL [Concomitant]
  3. SYNTHROID [Concomitant]
     Indication: HYPOTHYROIDISM

REACTIONS (9)
  - ABDOMINAL PAIN UPPER [None]
  - BRONCHOSPASM [None]
  - DIZZINESS [None]
  - DYSPHONIA [None]
  - DYSPNOEA [None]
  - INSOMNIA [None]
  - OBSTRUCTIVE AIRWAYS DISORDER [None]
  - SENSATION OF PRESSURE [None]
  - THROAT TIGHTNESS [None]
